FAERS Safety Report 23973524 (Version 1)
Quarter: 2024Q2

REPORT INFORMATION
  Report Type: Spontaneous
  Country: US (occurrence: US)
  Receive Date: 20240613
  Receipt Date: 20240613
  Transmission Date: 20240716
  Serious: No
  Sender: FDA-Public Use
  Company Number: US-009507513-2405USA004331

PATIENT
  Age: 45 Year
  Sex: Male

DRUGS (11)
  1. STROMECTOL [Suspect]
     Active Substance: IVERMECTIN
     Dosage: 200 MICROGRAM PER KILOGRAM, DAILY
     Route: 048
  2. THIAMINE [Concomitant]
     Active Substance: THIAMINE
     Dosage: UNK
  3. TAMSULOSIN [Concomitant]
     Active Substance: TAMSULOSIN
     Dosage: UNK
  4. CARVEDILOL [Concomitant]
     Active Substance: CARVEDILOL
     Dosage: UNK
  5. CLONIDINE [Concomitant]
     Active Substance: CLONIDINE
     Dosage: UNK
  6. PANTOPRAZOLE [Concomitant]
     Active Substance: PANTOPRAZOLE
     Dosage: UNK
  7. MIDODRINE [Concomitant]
     Active Substance: MIDODRINE
     Dosage: UNK
  8. BUSPIRONE [Concomitant]
     Active Substance: BUSPIRONE HYDROCHLORIDE
     Dosage: UNK
  9. INSULINUM [Concomitant]
     Dosage: UNK
  10. OXYCODONE AND ACETAMINOPHEN [Concomitant]
     Active Substance: ACETAMINOPHEN\OXYCODONE HYDROCHLORIDE
     Dosage: UNK
  11. ERYTHROPOIETIN [Concomitant]
     Active Substance: ERYTHROPOIETIN
     Dosage: UNK

REACTIONS (1)
  - Product use in unapproved indication [Unknown]
